FAERS Safety Report 6862782-9 (Version None)
Quarter: 2010Q3

REPORT INFORMATION
  Report Type: 
  Country: None (occurrence: None)
  Receive Date: 20100721
  Receipt Date: 20100713
  Transmission Date: 20110219
  Serious: Yes (Other)
  Sender: FDA-Public Use
  Company Number: IL-ROCHE-715240

PATIENT
  Age: 24 Year
  Sex: Female

DRUGS (6)
  1. OSELTAMIVIR [Suspect]
     Indication: H1N1 INFLUENZA
     Route: 065
  2. OSELTAMIVIR [Suspect]
     Dosage: DOSE DOUBLED
     Route: 065
  3. OSELTAMIVIR [Suspect]
     Dosage: REDUCED TO STANDARD DOSE
     Route: 065
  4. FLUOXETINE HCL [Concomitant]
  5. ROXITHROMYCIN [Concomitant]
  6. BRONCHODILATOR [Concomitant]
     Route: 055

REACTIONS (1)
  - BRADYCARDIA [None]
